FAERS Safety Report 8839374 (Version 1)
Quarter: 2012Q4

REPORT INFORMATION
  Report Type: Spontaneous
  Country: US (occurrence: None)
  Receive Date: 20121011
  Receipt Date: 20121011
  Transmission Date: 20130627
  Serious: Yes (Other)
  Sender: FDA-Public Use
  Company Number: None

PATIENT
  Age: 67 Year
  Sex: Female
  Weight: 133.81 kg

DRUGS (1)
  1. PERIDEX [Suspect]
     Indication: PERIODONTAL DISEASE
     Route: 061

REACTIONS (5)
  - Oral pain [None]
  - Lip erosion [None]
  - Tongue ulceration [None]
  - Glossitis [None]
  - Stomatitis [None]
